FAERS Safety Report 5963209-1 (Version None)
Quarter: 2008Q4

REPORT INFORMATION
  Report Type: 
  Country: None (occurrence: None)
  Receive Date: 20081124
  Receipt Date: 20081113
  Transmission Date: 20090506
  Serious: No
  Sender: FDA-Public Use
  Company Number: JP-JNJFOC-20081006173

PATIENT
  Sex: Male
  Weight: 48 kg

DRUGS (14)
  1. FENTANYL CITRATE [Suspect]
     Indication: CANCER PAIN
     Route: 062
  2. FENTANYL CITRATE [Suspect]
     Route: 062
  3. FENTANYL CITRATE [Suspect]
     Route: 062
  4. FENTANYL CITRATE [Suspect]
     Indication: CANCER PAIN
     Route: 062
  5. MAGNESIUM OXIDE [Concomitant]
     Route: 048
  6. NORVASC [Concomitant]
     Route: 048
  7. LOXONIN [Concomitant]
     Route: 048
  8. DEPAS [Concomitant]
     Route: 048
  9. OMEPRAL [Concomitant]
     Route: 048
  10. UBRETID [Concomitant]
     Route: 048
  11. COTRIM [Concomitant]
     Route: 048
  12. RITUXAN [Concomitant]
     Indication: NON-HODGKIN'S LYMPHOMA
     Route: 041
  13. VENA [Concomitant]
     Indication: NON-HODGKIN'S LYMPHOMA
     Route: 048
  14. RHYTHMY [Concomitant]
     Dosage: 1-2 MG
     Route: 048

REACTIONS (4)
  - FEELING ABNORMAL [None]
  - INSOMNIA [None]
  - MALAISE [None]
  - WRONG TECHNIQUE IN DRUG USAGE PROCESS [None]
